FAERS Safety Report 9520609 (Version 16)
Quarter: 2014Q3

REPORT INFORMATION
  Report Type: Spontaneous
  Country: GB (occurrence: GB)
  Receive Date: 20130913
  Receipt Date: 20140930
  Transmission Date: 20150326
  Serious: Yes (Hospitalization, Other)
  Sender: FDA-Public Use
  Company Number: GB-009507513-0910GBR00060

PATIENT
  Age: 42 Year
  Sex: Female
  Weight: 74 kg

DRUGS (12)
  1. NOVORAPID [Concomitant]
     Active Substance: INSULIN ASPART
     Indication: GESTATIONAL DIABETES
     Dosage: 4 IU, UNK
     Route: 058
     Dates: end: 20091022
  2. NORVIR [Suspect]
     Active Substance: RITONAVIR
     Dosage: 100 MG 1/1 DAY
     Route: 065
     Dates: start: 20081023
  3. TRUVADA [Suspect]
     Active Substance: EMTRICITABINE\TENOFOVIR DISOPROXIL FUMARATE
     Indication: HIV INFECTION
     Dosage: 600 MG, BID
     Route: 048
     Dates: start: 20070605, end: 20081023
  4. AZIDOTHYMIDINE PHOSPHONATE [Concomitant]
     Indication: ANTIVIRAL PROPHYLAXIS
     Dosage: UNK
     Route: 042
  5. INTELENCE [Suspect]
     Active Substance: ETRAVIRINE
     Dosage: 500 MG, BID
     Route: 048
     Dates: start: 20081023
  6. NORVIR [Suspect]
     Active Substance: RITONAVIR
     Indication: HIV INFECTION
     Dosage: 200 MG, DAILY
     Route: 048
     Dates: start: 20060905, end: 20081023
  7. APTIVUS [Suspect]
     Active Substance: TIPRANAVIR
     Indication: HIV INFECTION
     Dosage: 500 MG, 2/1 DAYS
     Route: 048
     Dates: start: 20060905, end: 20081023
  8. PREDNISOLONE. [Concomitant]
     Active Substance: PREDNISOLONE
     Indication: PRODUCT USED FOR UNKNOWN INDICATION
     Dosage: 25 MG, UNK
     Route: 048
  9. ZIDOVUDINE. [Suspect]
     Active Substance: ZIDOVUDINE
     Route: 048
  10. PREZISTA [Suspect]
     Active Substance: DARUNAVIR ETHANOLATE
     Indication: HIV INFECTION
     Dosage: 600 MG, 2/1 DAYS
     Route: 048
     Dates: start: 20081023
  11. ISENTRESS [Suspect]
     Active Substance: RALTEGRAVIR POTASSIUM
     Indication: HIV INFECTION
     Dosage: 400 MG, TWICE DAILY, 2/1 DAYS
     Route: 048
     Dates: start: 20081023, end: 20090221
  12. INTELENCE [Suspect]
     Active Substance: ETRAVIRINE
     Indication: HIV INFECTION
     Dosage: 500 MG, BID
     Route: 048
     Dates: start: 20081023, end: 20081023

REACTIONS (4)
  - Lipodystrophy acquired [Recovered/Resolved]
  - Drug-induced liver injury [Unknown]
  - Exposure during pregnancy [Recovered/Resolved]
  - Premature labour [Recovered/Resolved]

NARRATIVE: CASE EVENT DATE: 20090221
